FAERS Safety Report 6980077-X (Version None)
Quarter: 2010Q3

REPORT INFORMATION
  Report Type: 
  Country: None (occurrence: None)
  Receive Date: 20100909
  Receipt Date: 20100827
  Transmission Date: 20110219
  Serious: Yes (Hospitalization)
  Sender: FDA-Public Use
  Company Number: CIP10002057

PATIENT
  Age: 37 Year
  Sex: Female

DRUGS (3)
  1. ASACOL [Suspect]
     Indication: CROHN'S DISEASE
     Dosage: 4 GRAMS DAILY, ORAL
     Route: 048
  2. AZATHIOPRINE [Suspect]
     Dosage: 100 MG DAILY, ORAL
     Route: 048
  3. MERCAPTOPURINE [Suspect]
     Dosage: 100 MG DAILY, ORAL
     Route: 048

REACTIONS (3)
  - HEPATOTOXICITY [None]
  - PANCYTOPENIA [None]
  - RENAL FAILURE [None]
